FAERS Safety Report 4518010-2 (Version None)
Quarter: 2004Q4

REPORT INFORMATION
  Report Type: 
  Country: None (occurrence: None)
  Receive Date: 20041130
  Receipt Date: 20041116
  Transmission Date: 20050328
  Serious: Yes (Hospitalization, Other)
  Sender: FDA-Public Use
  Company Number: US_0411108261

PATIENT
  Age: 78 Year
  Sex: Male

DRUGS (1)
  1. HUMULIN N [Suspect]
     Dosage: 12 U /2 DAY
     Dates: start: 19990101

REACTIONS (4)
  - HALLUCINATION [None]
  - ILL-DEFINED DISORDER [None]
  - MEDICATION ERROR [None]
  - PHARMACEUTICAL PRODUCT COMPLAINT [None]
